FAERS Safety Report 13320855 (Version 1)
Quarter: 2017Q1

REPORT INFORMATION
  Report Type: Spontaneous
  Country: CN (occurrence: CN)
  Receive Date: 20170309
  Receipt Date: 20170309
  Transmission Date: 20170428
  Serious: Yes (Other)
  Sender: FDA-Public Use
  Company Number: CN-TAKEDA-2017MPI001932

PATIENT
  Age: 62 Year
  Sex: Female

DRUGS (3)
  1. GEMCITABINE [Suspect]
     Active Substance: GEMCITABINE\GEMCITABINE HYDROCHLORIDE
     Indication: PERIPHERAL T-CELL LYMPHOMA UNSPECIFIED RECURRENT
     Dosage: UNK
     Route: 065
     Dates: start: 20090911
  2. VELCADE [Suspect]
     Active Substance: BORTEZOMIB
     Indication: PERIPHERAL T-CELL LYMPHOMA UNSPECIFIED RECURRENT
     Dosage: 2.1 MG, UNK
     Route: 065
     Dates: start: 20090911
  3. METHYLPREDNISOLONE. [Suspect]
     Active Substance: METHYLPREDNISOLONE
     Indication: PERIPHERAL T-CELL LYMPHOMA UNSPECIFIED RECURRENT
     Dosage: UNK
     Route: 065
     Dates: start: 20090911

REACTIONS (5)
  - Neurotoxicity [Unknown]
  - Off label use [Unknown]
  - Pruritus [Recovered/Resolved]
  - Product use issue [Unknown]
  - Rash papular [Recovered/Resolved]
